FAERS Safety Report 23418234 (Version 2)
Quarter: 2024Q2

REPORT INFORMATION
  Report Type: Report from Study
  Country: CA (occurrence: CA)
  Receive Date: 20240118
  Receipt Date: 20240404
  Transmission Date: 20240716
  Serious: Yes (Hospitalization, Other)
  Sender: FDA-Public Use
  Company Number: CA-JNJFOC-20231035860

PATIENT
  Age: 77 Year
  Sex: Female
  Weight: 45.4 kg

DRUGS (4)
  1. REMICADE [Suspect]
     Active Substance: INFLIXIMAB
     Indication: Colitis ulcerative
     Dosage: DOSE ALSO REPORTED AS 10 MG/KG?START DATE ALSO REPORTED AS 08-JUN-2017
     Route: 041
     Dates: start: 20160127
  2. REMICADE [Suspect]
     Active Substance: INFLIXIMAB
     Dosage: DOSE ALSO REPORTED AS 500 MG?START DATE ALSO REPORTED AS 22-SEP-2016
     Route: 041
     Dates: start: 20160725
  3. REMICADE [Suspect]
     Active Substance: INFLIXIMAB
     Route: 041
     Dates: start: 20170608
  4. POLYETHYLENE GLYCOL 3350 [Concomitant]
     Active Substance: POLYETHYLENE GLYCOL 3350
     Indication: Product used for unknown indication
     Route: 065

REACTIONS (7)
  - Colitis ulcerative [Not Recovered/Not Resolved]
  - Colectomy total [Recovering/Resolving]
  - Rectal fissure [Not Recovered/Not Resolved]
  - Anal fissure [Unknown]
  - Pain in extremity [Unknown]
  - Influenza [Not Recovered/Not Resolved]
  - Off label use [Unknown]

NARRATIVE: CASE EVENT DATE: 20231010
